FAERS Safety Report 6115761-3 (Version None)
Quarter: 2009Q1

REPORT INFORMATION
  Report Type: 
  Country: None (occurrence: None)
  Receive Date: 20090313
  Receipt Date: 20090309
  Transmission Date: 20090719
  Serious: Yes (Other)
  Sender: FDA-Public Use
  Company Number: NL-ABBOTT-09P-114-0557849-00

PATIENT
  Sex: Female

DRUGS (1)
  1. REDUCTIL 15MG [Suspect]
     Indication: OBESITY
     Route: 048
     Dates: start: 20070301, end: 20090101

REACTIONS (1)
  - ABORTION INDUCED [None]
